FAERS Safety Report 12281692 (Version 2)
Quarter: 2016Q3

REPORT INFORMATION
  Report Type: Spontaneous
  Country: PL (occurrence: PL)
  Receive Date: 20160419
  Receipt Date: 20160706
  Transmission Date: 20161109
  Serious: Yes (Other)
  Sender: FDA-Public Use
  Company Number: PL-GLAXOSMITHKLINE-PL2016GSK050475

PATIENT
  Sex: Female

DRUGS (1)
  1. ZINAT [Suspect]
     Active Substance: CEFUROXIME AXETIL
     Indication: PRODUCT USED FOR UNKNOWN INDICATION
     Dosage: 500 MG, UNK
     Route: 048

REACTIONS (3)
  - Anaphylactic shock [Unknown]
  - Dizziness [Unknown]
  - Resuscitation [Unknown]

NARRATIVE: CASE EVENT DATE: 20160408
